FAERS Safety Report 19257628 (Version 1)
Quarter: 2021Q2

REPORT INFORMATION
  Report Type: Spontaneous
  Country: US (occurrence: US)
  Receive Date: 20210513
  Receipt Date: 20210513
  Transmission Date: 20210717
  Serious: Yes (Hospitalization)
  Sender: FDA-Public Use
  Company Number: None

PATIENT
  Age: 59 Year
  Sex: Female

DRUGS (12)
  1. GABAPENTIN. [Concomitant]
     Active Substance: GABAPENTIN
  2. SILDENAFIL. [Suspect]
     Active Substance: SILDENAFIL
     Indication: SMALL INTESTINE CARCINOMA
     Route: 048
     Dates: start: 20210226
  3. OMPERAZOLE [Concomitant]
     Active Substance: OMEPRAZOLE
  4. CALCITRIOL. [Concomitant]
     Active Substance: CALCITRIOL
  5. METFORMIN [Concomitant]
     Active Substance: METFORMIN HYDROCHLORIDE
  6. VITAMIN D [Concomitant]
     Active Substance: VITAMIN D NOS
  7. SILDENAFIL. [Concomitant]
     Active Substance: SILDENAFIL
  8. BUMETANIDE. [Concomitant]
     Active Substance: BUMETANIDE
  9. LACTULOSE. [Concomitant]
     Active Substance: LACTULOSE
  10. POTASSIUM [Concomitant]
     Active Substance: POTASSIUM
  11. TYVASO [Concomitant]
     Active Substance: TREPROSTINIL
  12. XIFAXAN [Concomitant]
     Active Substance: RIFAXIMIN

REACTIONS (1)
  - Fluid retention [None]

NARRATIVE: CASE EVENT DATE: 20210508
